FAERS Safety Report 13377138 (Version 1)
Quarter: 2017Q1

REPORT INFORMATION
  Report Type: Other
  Country: CH (occurrence: CH)
  Receive Date: 20170328
  Receipt Date: 20170328
  Transmission Date: 20170429
  Serious: Yes (Hospitalization, Other)
  Sender: FDA-Public Use
  Company Number: CH-DEPOMED, INC.-CH-2017DEP000618

PATIENT
  Age: 90 Year
  Sex: Male
  Weight: 76 kg

DRUGS (11)
  1. COVERSUM N COMBI [Concomitant]
     Indication: HYPERTENSION
     Dosage: 5/1.25MG/DAY
  2. SYMFONA N [Concomitant]
     Active Substance: ORLISTAT
     Indication: PRODUCT USED FOR UNKNOWN INDICATION
     Dosage: 120 MG, QD
  3. ARLEVERT [Suspect]
     Active Substance: CINNARIZINE\DIMENHYDRINATE
     Indication: DIZZINESS
     Dosage: UNK
     Route: 048
     Dates: end: 20170209
  4. AMLODIPIN SANDOZ                   /00972402/ [Suspect]
     Active Substance: AMLODIPINE BESYLATE
     Indication: HYPERTENSION
     Dosage: UNK
  5. ASPIRIN CARDIO [Concomitant]
     Active Substance: ASPIRIN
     Indication: PRODUCT USED FOR UNKNOWN INDICATION
     Dosage: 100 MG, QD
  6. ADALAT CRONO [Concomitant]
     Active Substance: NIFEDIPINE
     Dosage: 20 MG, UNK
  7. MEPHADOLOR [Concomitant]
     Active Substance: MEFENAMIC ACID
     Indication: PRODUCT USED FOR UNKNOWN INDICATION
     Dosage: 500 MG, AS REQUIRED
  8. BETASERC                           /00141801/ [Concomitant]
     Active Substance: BETAHISTINE
     Indication: PRODUCT USED FOR UNKNOWN INDICATION
     Dosage: 24 MG, QD
  9. VALERIANA OFFICINALIS ROOT DRY EXTRACT [Concomitant]
     Active Substance: VALERIAN
     Indication: PRODUCT USED FOR UNKNOWN INDICATION
     Dosage: UNK
  10. TAPENTADOL HYDROCHLORIDE [Suspect]
     Active Substance: TAPENTADOL HYDROCHLORIDE
     Indication: PAIN
     Dosage: 50 MG, AS NEEDED
     Route: 048
     Dates: end: 20170209
  11. CINNAGERON [Suspect]
     Active Substance: CINNARIZINE
     Indication: DIZZINESS
     Dosage: 150 MG, AS NEEDED
     Route: 048
     Dates: end: 20170209

REACTIONS (3)
  - Chorea [Recovered/Resolved]
  - Ballismus [Recovered/Resolved]
  - Speech disorder [Unknown]

NARRATIVE: CASE EVENT DATE: 20170209
